FAERS Safety Report 25552360 (Version 2)
Quarter: 2025Q4

REPORT INFORMATION
  Report Type: Spontaneous
  Country: US (occurrence: US)
  Receive Date: 20250715
  Receipt Date: 20251126
  Transmission Date: 20260119
  Serious: Yes (Hospitalization, Other)
  Sender: NOVO NORDISK
  Company Number: US-NOVOPROD-1474174

PATIENT
  Age: 69 Year
  Sex: Female

DRUGS (3)
  1. NOVOLOG [Suspect]
     Active Substance: INSULIN ASPART
     Indication: Type 2 diabetes mellitus
     Dosage: 3 UNITS WITH EVERY MEAL DEPENDING ON GLUCOSE TESTING, SLIDING SCALE (IF OVER 100)
     Route: 058
     Dates: start: 202210, end: 202404
  2. NOVOLOG [Suspect]
     Active Substance: INSULIN ASPART
     Dosage: 3 UNITS WITH EVERY MEAL DEPENDING ON GLUCOSE TESTING, SLIDING SCALE (IF OVER 100)(RESTARTED)
     Dates: start: 20251001
  3. INSULIN NOS [Concomitant]
     Active Substance: INSULIN NOS
     Indication: Type 2 diabetes mellitus
     Dosage: UNK

REACTIONS (2)
  - Hernia repair [Unknown]
  - Hiatus hernia [Unknown]

NARRATIVE: CASE EVENT DATE: 20240111
